FAERS Safety Report 12798673 (Version 3)
Quarter: 2016Q4

REPORT INFORMATION
  Report Type: Report from Study
  Country: CA (occurrence: CA)
  Receive Date: 20160930
  Receipt Date: 20161010
  Transmission Date: 20170207
  Serious: Yes (Other)
  Sender: FDA-Public Use
  Company Number: CA-JNJFOC-20160929715

PATIENT
  Age: 58 Year
  Sex: Male
  Weight: 88 kg

DRUGS (3)
  1. PREDNISONE. [Concomitant]
     Active Substance: PREDNISONE
     Route: 065
     Dates: start: 20160824
  2. METHOTREXATE. [Concomitant]
     Active Substance: METHOTREXATE
     Dosage: AT LAST TREATMENT
     Route: 065
     Dates: start: 20160824
  3. REMICADE [Suspect]
     Active Substance: INFLIXIMAB
     Indication: RHEUMATOID ARTHRITIS
     Route: 042
     Dates: start: 20140108, end: 20160824

REACTIONS (3)
  - Off label use [Unknown]
  - Inappropriate schedule of drug administration [Unknown]
  - Throat cancer [Not Recovered/Not Resolved]

NARRATIVE: CASE EVENT DATE: 20140108
